FAERS Safety Report 6939101-2 (Version None)
Quarter: 2010Q3

REPORT INFORMATION
  Report Type: 
  Country: None (occurrence: None)
  Receive Date: 20100824
  Receipt Date: 20100820
  Transmission Date: 20110219
  Serious: Yes (Death)
  Sender: FDA-Public Use
  Company Number: PHHO2010BR12694

PATIENT
  Sex: Male
  Weight: 111 kg

DRUGS (1)
  1. CERTICAN [Suspect]
     Indication: LIVER TRANSPLANT
     Route: 048

REACTIONS (5)
  - ALCOHOLISM [None]
  - DIFFUSE ALVEOLAR DAMAGE [None]
  - HEPATIC ARTERY THROMBOSIS [None]
  - HEPATIC CIRRHOSIS [None]
  - POST PROCEDURAL COMPLICATION [None]
